FAERS Safety Report 4519503-4 (Version None)
Quarter: 2004Q4

REPORT INFORMATION
  Report Type: 
  Country: None (occurrence: None)
  Receive Date: 20041101
  Receipt Date: 20040405
  Transmission Date: 20050328
  Serious: Yes (Other)
  Sender: FDA-Public Use
  Company Number: HQWYE369706APR04

PATIENT
  Age: 44 Year
  Sex: Female
  Weight: 86.26 kg

DRUGS (2)
  1. PREMARIN [Suspect]
     Indication: HOT FLUSH
     Dosage: 1.25 MG TABLET DAILY, ORAL
     Route: 048
     Dates: start: 19990101, end: 20040314
  2. LEVOTHROID [Concomitant]

REACTIONS (4)
  - DRUG INEFFECTIVE [None]
  - HYPERHIDROSIS [None]
  - ROSACEA [None]
  - TEMPERATURE INTOLERANCE [None]
